FAERS Safety Report 22323974 (Version 2)
Quarter: 2023Q2

REPORT INFORMATION
  Report Type: Spontaneous
  Country: US (occurrence: None)
  Receive Date: 20230516
  Receipt Date: 20230626
  Transmission Date: 20230722
  Serious: Yes (Hospitalization)
  Sender: FDA-Public Use
  Company Number: 2023A108166

PATIENT
  Age: 86 Year
  Sex: Female

DRUGS (1)
  1. TEZSPIRE [Suspect]
     Active Substance: TEZEPELUMAB-EKKO
     Indication: Asthma
     Route: 058
     Dates: start: 202301, end: 202303

REACTIONS (4)
  - Atrial fibrillation [Recovering/Resolving]
  - Gout [Recovering/Resolving]
  - Cough [Unknown]
  - Pain in extremity [Unknown]
